FAERS Safety Report 4384940-8 (Version None)
Quarter: 2004Q2

REPORT INFORMATION
  Report Type: 
  Country: None (occurrence: None)
  Receive Date: 20040625
  Receipt Date: 20040615
  Transmission Date: 20050107
  Serious: Yes (Hospitalization)
  Sender: FDA-Public Use
  Company Number: FR-ROCHE-370923

PATIENT
  Age: 76 Year
  Sex: Male

DRUGS (5)
  1. NICARDIPINE HCL [Suspect]
     Indication: ESSENTIAL HYPERTENSION
     Route: 042
     Dates: start: 20031227, end: 20040102
  2. GAVISCON [Concomitant]
     Route: 048
  3. GLICLAZIDE [Concomitant]
     Route: 048
  4. PERINDOPRIL [Concomitant]
     Route: 048
  5. LOSARTAN POTASSIUM [Concomitant]
     Route: 048

REACTIONS (2)
  - INFLAMMATION [None]
  - PHLEBITIS [None]
